FAERS Safety Report 13307089 (Version 1)
Quarter: 2017Q1

REPORT INFORMATION
  Report Type: Spontaneous
  Country: BR (occurrence: BR)
  Receive Date: 20170308
  Receipt Date: 20170308
  Transmission Date: 20170428
  Serious: Yes (Other)
  Sender: FDA-Public Use
  Company Number: BR-PFIZER INC-2017096496

PATIENT
  Sex: Female
  Weight: 74 kg

DRUGS (5)
  1. DIOVAN [Concomitant]
     Active Substance: VALSARTAN
     Indication: BLOOD PRESSURE INCREASED
     Dosage: ONE TABLET EVERY NIGHT
     Route: 048
  2. FRONTAL XR [Suspect]
     Active Substance: ALPRAZOLAM
     Dosage: ONE TABLET EVERY NIGHT
     Route: 048
  3. EXODUS /01588502/ [Concomitant]
     Indication: BIPOLAR DISORDER
     Dosage: ONE TABLET IN THE MORNING
     Route: 048
     Dates: start: 2002
  4. FRONTAL XR [Suspect]
     Active Substance: ALPRAZOLAM
     Indication: INSOMNIA
     Dosage: ONE TABLET EVERY NIGHT
     Route: 048
     Dates: start: 1987
  5. FRONTAL [Suspect]
     Active Substance: ALPRAZOLAM
     Dosage: UNK

REACTIONS (3)
  - Neoplasm [Unknown]
  - Tongue neoplasm [Unknown]
  - Blood disorder [Unknown]
